FAERS Safety Report 5690706-9 (Version None)
Quarter: 2008Q2

REPORT INFORMATION
  Report Type: 
  Country: None (occurrence: None)
  Receive Date: 20080401
  Receipt Date: 20080327
  Transmission Date: 20081010
  Serious: Yes (Death)
  Sender: FDA-Public Use
  Company Number: PK-MERCK-0803USA04607

PATIENT

DRUGS (2)
  1. CANCIDAS [Suspect]
     Indication: ASPERGILLOSIS
     Route: 065
  2. AMPHOTERICIN B [Concomitant]
     Indication: ASPERGILLOSIS
     Route: 065

REACTIONS (1)
  - DEATH [None]
